FAERS Safety Report 9131127 (Version 1)
Quarter: 2013Q1

REPORT INFORMATION
  Report Type: Spontaneous
  Country: DE (occurrence: DE)
  Receive Date: 20130301
  Receipt Date: 20130301
  Transmission Date: 20140127
  Serious: Yes (Hospitalization, Other)
  Sender: FDA-Public Use
  Company Number: DE-AMGEN-DEUSP2013014028

PATIENT
  Age: 68 Year
  Sex: Female

DRUGS (3)
  1. ENBREL [Suspect]
     Indication: RHEUMATOID ARTHRITIS
     Dosage: 25 MG, WEEKLY
     Dates: start: 20100603
  2. PREDNISOLON                        /00016201/ [Concomitant]
     Dosage: 5 MG, UNK
  3. CORTISONE [Concomitant]
     Indication: RHEUMATIC FEVER
     Dosage: 5 MG, UNK

REACTIONS (3)
  - Myocardial infarction [Not Recovered/Not Resolved]
  - Rheumatoid arthritis [Not Recovered/Not Resolved]
  - Dyspnoea [Not Recovered/Not Resolved]
